FAERS Safety Report 5928632-X (Version None)
Quarter: 2008Q4

REPORT INFORMATION
  Report Type: 
  Country: None (occurrence: None)
  Receive Date: 20081023
  Receipt Date: 20081021
  Transmission Date: 20090506
  Serious: Yes (Disabling)
  Sender: FDA-Public Use
  Company Number: US-B.I. PHARMACEUTICALS,INC./RIDGEFIELD-2008-BP-13746BP

PATIENT
  Sex: Female

DRUGS (12)
  1. SPIRIVA [Suspect]
     Indication: CHRONIC OBSTRUCTIVE PULMONARY DISEASE
     Route: 055
     Dates: start: 20060101
  2. SPIRIVA [Suspect]
     Indication: EMPHYSEMA
  3. AMLODIPINE [Concomitant]
     Indication: HYPERTENSION
     Dosage: 2.5MG
     Route: 048
     Dates: start: 20060101
  4. ALBUTEROL SULFATE [Concomitant]
     Indication: CHRONIC OBSTRUCTIVE PULMONARY DISEASE
     Route: 055
     Dates: start: 20020101
  5. ADVAIR DISKUS 100/50 [Concomitant]
     Route: 048
     Dates: start: 20020101
  6. FOSEMAX [Concomitant]
     Indication: OSTEOPOROSIS
     Dosage: 10MG
     Route: 048
  7. COMBIVENT [Concomitant]
     Indication: CHRONIC OBSTRUCTIVE PULMONARY DISEASE
     Route: 055
     Dates: start: 20020101
  8. T CAPS [Concomitant]
  9. ASP [Concomitant]
  10. VIT [Concomitant]
  11. CALC [Concomitant]
  12. OXYGEN [Concomitant]

REACTIONS (2)
  - MACULAR DEGENERATION [None]
  - VISUAL IMPAIRMENT [None]
